FAERS Safety Report 8025686-4 (Version None)
Quarter: 2012Q1

REPORT INFORMATION
  Report Type: 
  Country: None (occurrence: None)
  Receive Date: 20120105
  Receipt Date: 20111226
  Transmission Date: 20120608
  Serious: Yes (Other)
  Sender: FDA-Public Use
  Company Number: GB-ASTRAZENECA-2011SE78479

PATIENT
  Age: 34 Year
  Sex: Female

DRUGS (4)
  1. FOSCARNET [Suspect]
     Indication: CYTOMEGALOVIRUS INFECTION
     Route: 042
  2. FOSCARNET [Suspect]
     Dosage: REINTRODUCED
     Route: 042
  3. FOSCARNET [Suspect]
     Dosage: REINTRODUCED
     Route: 042
  4. FOSCARNET [Suspect]
     Indication: PNEUMONITIS
     Route: 042

REACTIONS (2)
  - NEPHROPATHY TOXIC [None]
  - NEUROPATHY PERIPHERAL [None]
